FAERS Safety Report 12947243 (Version 4)
Quarter: 2016Q4

REPORT INFORMATION
  Report Type: Report from Study
  Country: None (occurrence: GB)
  Receive Date: 20161116
  Receipt Date: 20161209
  Transmission Date: 20170207
  Serious: Yes (Life-Threatening, Hospitalization, Other)
  Sender: FDA-Public Use
  Company Number: GB-ABBVIE-16P-167-1779528-00

PATIENT
  Age: 35 Year
  Sex: Female

DRUGS (3)
  1. CYANOCOBALAMIN; VITAMIN B12 [Concomitant]
     Indication: PERNICIOUS ANAEMIA
     Route: 058
     Dates: start: 201308
  2. HUMIRA [Suspect]
     Active Substance: ADALIMUMAB
     Indication: COLITIS ULCERATIVE
     Route: 058
     Dates: start: 20160803
  3. CO-CYPRINDIOL; DIANETTE [Concomitant]
     Indication: POLYCYSTIC OVARIES
     Dosage: 21 DAYS THEN 7 DAY INTERVAL
     Route: 048
     Dates: start: 1997

REACTIONS (1)
  - Ludwig angina [Recovered/Resolved]

NARRATIVE: CASE EVENT DATE: 20160904
